FAERS Safety Report 8818149 (Version 2)
Quarter: 2012Q4

REPORT INFORMATION
  Report Type: 
  Country: FR (occurrence: BJ)
  Receive Date: 20121001
  Receipt Date: 20121031
  Transmission Date: 20130627
  Serious: Yes (Other)
  Sender: FDA-Public Use
  Company Number: FR-ROCHE-1139827

PATIENT
  Sex: Female

DRUGS (1)
  1. MEFLOQUINE HYDROCHLORIDE [Suspect]
     Indication: MALARIA PROPHYLAXIS
     Dosage: between 16 and 28 weeks, after 30 weeks
     Route: 065

REACTIONS (3)
  - Exposure during pregnancy [Unknown]
  - Abortion [Unknown]
  - Stillbirth [Unknown]
